FAERS Safety Report 17074019 (Version 1)
Quarter: 2019Q4

REPORT INFORMATION
  Report Type: Spontaneous
  Country: JP (occurrence: JP)
  Receive Date: 20191126
  Receipt Date: 20191126
  Transmission Date: 20200122
  Serious: Yes (Hospitalization, Other)
  Sender: FDA-Public Use
  Company Number: JP-LUPIN PHARMACEUTICALS INC.-2019-07639

PATIENT
  Age: 69 Year
  Sex: Female

DRUGS (1)
  1. CEFTRIAXONE. [Suspect]
     Active Substance: CEFTRIAXONE
     Indication: MENINGOCOCCAL INFECTION
     Dosage: 4 GRAM, QD
     Route: 065

REACTIONS (1)
  - IIIrd nerve paralysis [Recovered/Resolved]
